FAERS Safety Report 21162813 (Version 1)
Quarter: 2022Q3

REPORT INFORMATION
  Report Type: Spontaneous
  Country: DK (occurrence: DK)
  Receive Date: 20220802
  Receipt Date: 20220802
  Transmission Date: 20221027
  Serious: Yes (Hospitalization)
  Sender: FDA-Public Use
  Company Number: None

PATIENT
  Age: 56 Year
  Sex: Female
  Weight: 52 kg

DRUGS (4)
  1. OMEPRAZOLE [Suspect]
     Active Substance: OMEPRAZOLE
     Indication: Dyspepsia
     Dosage: 80 MG, QD, STRENGTH: VARYING, BUT CURRENTLY 40 MG. DOSAGE: VARYING THROUGH TIME
     Route: 065
     Dates: start: 2011
  2. OMEPRAZOLE [Suspect]
     Active Substance: OMEPRAZOLE
     Dosage: 40 MG, BID
     Route: 065
  3. PANTOPRAZOLE [Suspect]
     Active Substance: PANTOPRAZOLE
     Indication: Dyspepsia
     Dosage: UNK, STRENGTH: UNKNOWN.DOSAGE: VARYING
     Route: 065
     Dates: start: 2010, end: 202105
  4. PANTOPRAZOLE [Suspect]
     Active Substance: PANTOPRAZOLE
     Dosage: 40 MG, BID
     Route: 065

REACTIONS (3)
  - Hypomagnesaemia [Not Recovered/Not Resolved]
  - Diplopia [Unknown]
  - Tremor [Unknown]

NARRATIVE: CASE EVENT DATE: 20140701
